FAERS Safety Report 9555529 (Version 2)
Quarter: 2013Q4

REPORT INFORMATION
  Report Type: Spontaneous
  Country: FR (occurrence: FR)
  Receive Date: 20130926
  Receipt Date: 20131001
  Transmission Date: 20140711
  Serious: Yes (Death, Other)
  Sender: FDA-Public Use
  Company Number: FR-RANBAXY-2013RR-73451

PATIENT
  Age: 86 Year
  Sex: Female

DRUGS (10)
  1. BISOPROLOL [Suspect]
     Indication: PRODUCT USED FOR UNKNOWN INDICATION
     Dosage: 5 MG DAILY
     Route: 048
  2. CANDESARTAN [Suspect]
     Indication: PRODUCT USED FOR UNKNOWN INDICATION
     Dosage: 16 MG/DAY
     Route: 048
  3. LANSOPRAZOLE [Suspect]
     Indication: PRODUCT USED FOR UNKNOWN INDICATION
     Dosage: 15 MG/DAY
     Route: 048
  4. AMIODARONE [Suspect]
     Indication: ATRIAL FIBRILLATION
     Dosage: 1 DF/DAY
     Route: 048
  5. METFORMIN [Suspect]
     Indication: DIABETES MELLITUS
     Dosage: 850 MG/DAY
     Route: 048
     Dates: end: 20130610
  6. FUROSEMIDE TEVA [Suspect]
     Indication: PRODUCT USED FOR UNKNOWN INDICATION
     Dosage: 60 MG/DAY
     Route: 065
     Dates: end: 20130608
  7. PREVISCAN [Suspect]
     Indication: ATRIAL FIBRILLATION
     Dosage: 0.5 DF DAILY
     Route: 048
     Dates: end: 20130604
  8. DERMOVAL [Suspect]
     Indication: PRODUCT USED FOR UNKNOWN INDICATION
     Dosage: ONE APPLICATION DAILY
     Route: 003
  9. PAROEX [Suspect]
     Indication: PRODUCT USED FOR UNKNOWN INDICATION
     Dosage: UNK
     Route: 002
  10. AMOXICILLINE [Concomitant]
     Indication: URINARY TRACT INFECTION
     Dosage: 1 G, TID
     Route: 065
     Dates: start: 20130529, end: 20130606

REACTIONS (3)
  - Somnolence [Recovered/Resolved]
  - Hyponatraemia [Not Recovered/Not Resolved]
  - Hypokalaemia [Recovered/Resolved]
